FAERS Safety Report 10279137 (Version 1)
Quarter: 2014Q3

REPORT INFORMATION
  Report Type: Report from Study
  Country: CN (occurrence: CN)
  Receive Date: 20140707
  Receipt Date: 20140707
  Transmission Date: 20150326
  Serious: Yes (Other)
  Sender: FDA-Public Use
  Company Number: CN-ROCHE-1429692

PATIENT
  Age: 49 Year
  Sex: Male

DRUGS (2)
  1. CAPECITABINE [Suspect]
     Active Substance: CAPECITABINE
     Indication: RECTAL CANCER
     Dosage: EVERY 21 DAYS
     Route: 048
     Dates: end: 20090622
  2. CAPECITABINE [Suspect]
     Active Substance: CAPECITABINE
     Route: 048
     Dates: start: 20090630, end: 20090920

REACTIONS (4)
  - Skin disorder [Unknown]
  - Decreased appetite [Unknown]
  - Rectal tenesmus [Unknown]
  - Diarrhoea [Unknown]
